FAERS Safety Report 9747615 (Version 3)
Quarter: 2014Q1

REPORT INFORMATION
  Report Type: Report from Study
  Country: AU (occurrence: AU)
  Receive Date: 20131212
  Receipt Date: 20140106
  Transmission Date: 20141002
  Serious: Yes (Hospitalization)
  Sender: FDA-Public Use
  Company Number: AU-ROCHE-1312540

PATIENT
  Age: 39 Year
  Sex: Male
  Weight: 90.5 kg

DRUGS (3)
  1. OBINUTUZUMAB [Suspect]
     Indication: NON-HODGKIN^S LYMPHOMA UNSPECIFIED HISTOLOGY INDOLENT
     Dosage: DATE OF MOST RECENT DOSE PRIOR TO AE : 12/NOV/2013 WAS 4 MG/ML, VOLUME 250 ML
     Route: 042
     Dates: start: 20130918
  2. BENDAMUSTINE [Suspect]
     Indication: NON-HODGKIN^S LYMPHOMA UNSPECIFIED HISTOLOGY INDOLENT
     Dosage: LAST DOSE : 200.7MG, ?DATE OF MOST RECENT DOSE PRIOR TO AE : 13/NOV/2013
     Route: 042
     Dates: start: 20130918
  3. ALLOPURINOL [Concomitant]
     Route: 065
     Dates: start: 20130916

REACTIONS (1)
  - Lobar pneumonia [Not Recovered/Not Resolved]
